FAERS Safety Report 25064777 (Version 1)
Quarter: 2025Q1

REPORT INFORMATION
  Report Type: Spontaneous
  Country: US (occurrence: US)
  Receive Date: 20250311
  Receipt Date: 20250311
  Transmission Date: 20250409
  Serious: No
  Sender: Unknown Manufacturer
  Company Number: US-NEURELIS-USNEU24000620

PATIENT

DRUGS (2)
  1. VALTOCO [Suspect]
     Active Substance: DIAZEPAM
     Indication: Febrile convulsion
     Route: 045
     Dates: start: 2024
  2. VALTOCO [Suspect]
     Active Substance: DIAZEPAM
     Route: 045
     Dates: start: 2024

REACTIONS (1)
  - Product prescribing issue [Unknown]
